FAERS Safety Report 23527920 (Version 1)
Quarter: 2024Q1

REPORT INFORMATION
  Report Type: Report from Study
  Country: DE (occurrence: DE)
  Receive Date: 20240215
  Receipt Date: 20240215
  Transmission Date: 20240410
  Serious: Yes (Other)
  Sender: FDA-Public Use
  Company Number: DE-JNJFOC-20240217454

PATIENT

DRUGS (3)
  1. TREMFYA [Suspect]
     Active Substance: GUSELKUMAB
     Indication: Psoriasis
     Route: 065
  2. TREMFYA [Suspect]
     Active Substance: GUSELKUMAB
  3. TREMFYA [Suspect]
     Active Substance: GUSELKUMAB

REACTIONS (7)
  - Colon cancer [Unknown]
  - Arterial stenosis [Unknown]
  - COVID-19 [Unknown]
  - Nasopharyngitis [Unknown]
  - Alcohol abuse [Unknown]
  - Hepatic mass [Unknown]
  - Arthralgia [Unknown]
